FAERS Safety Report 5624980-1 (Version None)
Quarter: 2008Q1

REPORT INFORMATION
  Report Type: 
  Country: None (occurrence: None)
  Receive Date: 20080213
  Receipt Date: 20080207
  Transmission Date: 20080703
  Serious: Yes (Hospitalization, Other)
  Sender: FDA-Public Use
  Company Number: US-ALLERGAN-0801505US

PATIENT
  Sex: Female

DRUGS (2)
  1. BOTOX COSMETIC [Suspect]
     Indication: SKIN WRINKLING
     Dosage: 60 UNITS, SINGLE
     Route: 030
     Dates: start: 20080114, end: 20080114
  2. BOTOX COSMETIC [Suspect]
     Dosage: 60 UNITS, SINGLE
     Route: 030

REACTIONS (9)
  - BLOOD CREATINE PHOSPHOKINASE INCREASED [None]
  - BOTULISM [None]
  - DYSARTHRIA [None]
  - EYELID PTOSIS [None]
  - FACIAL PALSY [None]
  - FALL [None]
  - INFLUENZA LIKE ILLNESS [None]
  - MYALGIA [None]
  - PERSONALITY CHANGE [None]
